FAERS Safety Report 7563774-7 (Version None)
Quarter: 2011Q2

REPORT INFORMATION
  Report Type: 
  Country: None (occurrence: None)
  Receive Date: 20110622
  Receipt Date: 20110613
  Transmission Date: 20111010
  Serious: Yes (Hospitalization, Other)
  Sender: FDA-Public Use
  Company Number: US-ASTRAZENECA-2011SE14083

PATIENT
  Age: 80 Year
  Sex: Female
  Weight: 65.8 kg

DRUGS (6)
  1. PRILOSEC [Suspect]
     Route: 048
  2. ATENOLOL [Suspect]
     Route: 048
  3. VARIOUS SUPPLEMENTS [Concomitant]
     Route: 048
  4. CRESTOR [Suspect]
     Indication: CARDIOVASCULAR EVENT PROPHYLAXIS
     Route: 048
     Dates: start: 20060101
  5. EVISTA [Concomitant]
     Dates: end: 20110301
  6. ASPIRIN [Concomitant]
     Route: 048

REACTIONS (12)
  - CORONARY ARTERY BYPASS [None]
  - ARTHRALGIA [None]
  - HYPERTENSION [None]
  - CONSTIPATION [None]
  - DECREASED APPETITE [None]
  - GAIT DISTURBANCE [None]
  - PAIN IN EXTREMITY [None]
  - CHRONIC OBSTRUCTIVE PULMONARY DISEASE [None]
  - LIMB INJURY [None]
  - PNEUMONIA [None]
  - OSTEOPENIA [None]
  - MUSCULOSKELETAL CHEST PAIN [None]
